FAERS Safety Report 8571303-4 (Version None)
Quarter: 2012Q3

REPORT INFORMATION
  Report Type: 
  Country: None (occurrence: None)
  Receive Date: 20120806
  Receipt Date: 20120726
  Transmission Date: 20120928
  Serious: Yes (Other)
  Sender: FDA-Public Use
  Company Number: US-CELGENEUS-163-21880-10070684

PATIENT

DRUGS (4)
  1. REVLIMID [Suspect]
     Indication: MULTIPLE MYELOMA
     Dosage: 25 MILLIGRAM
     Route: 048
  2. ELOTUZUMAB [Suspect]
     Indication: MULTIPLE MYELOMA
     Dosage: 5, 10 AND 20 MG/KG
     Route: 041
  3. DEXAMETHASONE [Suspect]
     Indication: MULTIPLE MYELOMA
     Dosage: 40 MILLIGRAM
     Route: 048
  4. ELOTUZUMAB [Suspect]
     Dosage: 5, 10 AND 20 MG/KG
     Route: 041

REACTIONS (34)
  - ENTERITIS [None]
  - SEPSIS [None]
  - ARTHRALGIA [None]
  - LUNG DISORDER [None]
  - ATRIAL FIBRILLATION [None]
  - FEBRILE NEUTROPENIA [None]
  - CONSTIPATION [None]
  - LYMPHOPENIA [None]
  - ASTHENIA [None]
  - RASH [None]
  - COUGH [None]
  - ANAEMIA [None]
  - NAUSEA [None]
  - MUSCLE SPASMS [None]
  - DISEASE PROGRESSION [None]
  - HYPERHIDROSIS [None]
  - ANAPHYLACTIC REACTION [None]
  - BRADYCARDIA [None]
  - DIZZINESS [None]
  - OEDEMA PERIPHERAL [None]
  - NEUTROPENIA [None]
  - PNEUMONIA [None]
  - STRIDOR [None]
  - CHILLS [None]
  - HYPOKALAEMIA [None]
  - BACK PAIN [None]
  - DIVERTICULAR PERFORATION [None]
  - PYREXIA [None]
  - DIARRHOEA [None]
  - THROMBOCYTOPENIA [None]
  - FATIGUE [None]
  - INSOMNIA [None]
  - DYSPNOEA [None]
  - HEADACHE [None]
